FAERS Safety Report 10236311 (Version 1)
Quarter: 2014Q2

REPORT INFORMATION
  Report Type: Spontaneous
  Country: GB (occurrence: GB)
  Receive Date: 20140613
  Receipt Date: 20140613
  Transmission Date: 20141212
  Serious: Yes (Life-Threatening, Hospitalization, Disabling, Other)
  Sender: FDA-Public Use
  Company Number: GB-ELI_LILLY_AND_COMPANY-GB201406002018

PATIENT
  Age: 54 Year
  Sex: Female
  Weight: 82.55 kg

DRUGS (2)
  1. PROZAC [Suspect]
     Indication: PRODUCT USED FOR UNKNOWN INDICATION
     Dosage: 25 MG, UNK
     Route: 048
     Dates: start: 20120314, end: 20120318
  2. FLAGYL                             /00012501/ [Interacting]
     Indication: PRODUCT USED FOR UNKNOWN INDICATION
     Dosage: 500 MG, UNKNOWN
     Route: 048
     Dates: start: 20120314, end: 20120318

REACTIONS (3)
  - Serotonin syndrome [Recovering/Resolving]
  - Post-traumatic stress disorder [Unknown]
  - Drug interaction [Unknown]
